FAERS Safety Report 13860524 (Version 2)
Quarter: 2017Q3

REPORT INFORMATION
  Report Type: Spontaneous
  Country: US (occurrence: US)
  Receive Date: 20170811
  Receipt Date: 20170822
  Transmission Date: 20171127
  Serious: Yes (Hospitalization, Other)
  Sender: FDA-Public Use
  Company Number: US-AUROBINDO-AUR-APL-2017-38690

PATIENT
  Age: 27 Year
  Sex: Male

DRUGS (1)
  1. LOPERAMIDE HCL [Suspect]
     Active Substance: LOPERAMIDE HYDROCHLORIDE
     Indication: PRODUCT USED FOR UNKNOWN INDICATION
     Dosage: 150-200 TABLETS OF LOPERAMIDE 2MG
     Route: 065

REACTIONS (12)
  - Ventricular tachycardia [Unknown]
  - Pain [Unknown]
  - Congestive cardiomyopathy [Unknown]
  - Electrocardiogram QRS complex prolonged [Unknown]
  - Ejection fraction decreased [Recovered/Resolved]
  - Drug abuse [Unknown]
  - Oedema peripheral [Unknown]
  - Electrocardiogram P wave abnormal [Unknown]
  - Electrocardiogram QT prolonged [Unknown]
  - Dyspnoea exertional [Unknown]
  - Asthenia [Unknown]
  - Overdose [Unknown]
